FAERS Safety Report 10176914 (Version 3)
Quarter: 2014Q2

REPORT INFORMATION
  Report Type: Spontaneous
  Country: JP (occurrence: JP)
  Receive Date: 20140516
  Receipt Date: 20140521
  Transmission Date: 20141212
  Serious: No
  Sender: FDA-Public Use
  Company Number: JP-BRISTOL-MYERS SQUIBB COMPANY-20617783

PATIENT
  Age: 84 Year
  Sex: Male

DRUGS (7)
  1. ELIQUIS [Suspect]
     Route: 048
     Dates: start: 201402, end: 20140403
  2. DENOSUMAB [Concomitant]
     Indication: OSTEOPOROSIS
  3. AZILSARTAN MEDOXOMIL [Concomitant]
     Indication: HYPERTENSION
  4. PLAVIX [Concomitant]
     Indication: CEREBRAL INFARCTION
     Dates: end: 20140403
  5. RABEPRAZOLE [Concomitant]
     Indication: ABDOMINAL DISCOMFORT
  6. HALFDIGOXIN [Concomitant]
     Indication: CARDIAC FAILURE
  7. MAGNESIUM OXIDE [Concomitant]

REACTIONS (2)
  - Haematuria [Recovered/Resolved]
  - Protein urine [Unknown]
